FAERS Safety Report 4569356-3 (Version None)
Quarter: 2005Q1

REPORT INFORMATION
  Report Type: 
  Country: None (occurrence: None)
  Receive Date: 20050203
  Receipt Date: 20040724
  Transmission Date: 20050727
  Serious: Yes (Other)
  Sender: FDA-Public Use
  Company Number: PHEH2004US08039

PATIENT
  Age: 57 Year
  Sex: Male

DRUGS (5)
  1. AMOXICILLIN [Concomitant]
     Indication: OPEN WOUND
     Dosage: 500 MG, TID FOR LIFE
     Dates: start: 20040224
  2. ZOMETA [Suspect]
     Indication: METASTASES TO BONE
     Dosage: 4 MG MONTHLY
     Route: 042
     Dates: start: 20020906, end: 20040604
  3. ALLOPURINOL [Concomitant]
     Indication: GOUT
     Dosage: UNK, QD
  4. MULTI-VITAMINS [Concomitant]
     Dosage: UNK, QD
  5. AMBIEN [Concomitant]
     Dosage: PRN

REACTIONS (8)
  - BONE DEBRIDEMENT [None]
  - BONE DISORDER [None]
  - IMPAIRED HEALING [None]
  - MOUTH ULCERATION [None]
  - OPEN WOUND [None]
  - OSTEOMYELITIS [None]
  - OSTEONECROSIS [None]
  - WOUND SECRETION [None]
